FAERS Safety Report 24857812 (Version 2)
Quarter: 2025Q3

REPORT INFORMATION
  Report Type: Spontaneous
  Country: TR (occurrence: TR)
  Receive Date: 20250117
  Receipt Date: 20250809
  Transmission Date: 20251021
  Serious: Yes (Other)
  Sender: ALEXION PHARMACEUTICALS
  Company Number: TR-ASTRAZENECA-202501TUR012487TR

PATIENT
  Sex: Male

DRUGS (3)
  1. LYNPARZA [Suspect]
     Active Substance: OLAPARIB
     Indication: Prostate cancer
     Dosage: 100 MILLIGRAM,2 TABLETS EACH, BID
  2. LYNPARZA [Suspect]
     Active Substance: OLAPARIB
     Dosage: 100 MILLIGRAM
  3. SUCRALFATE [Concomitant]
     Active Substance: SUCRALFATE
     Route: 065

REACTIONS (2)
  - Oesophagitis [Recovering/Resolving]
  - Haemorrhage [Recovering/Resolving]
